FAERS Safety Report 9228396 (Version 2)
Quarter: 2013Q2

REPORT INFORMATION
  Report Type: Spontaneous
  Country: FR (occurrence: FR)
  Receive Date: 20130412
  Receipt Date: 20130412
  Transmission Date: 20140414
  Serious: Yes (Other)
  Sender: FDA-Public Use
  Company Number: FR-TEVA-389582ISR

PATIENT
  Age: 22 Year
  Sex: Female

DRUGS (2)
  1. LEELOO 0,1 MG/0,02 MG, COMPRIM? ENROB? [Suspect]
     Indication: ORAL CONTRACEPTION
     Route: 048
  2. PROCUTA 40 MG, CAPSULE MOLLE [Concomitant]
     Indication: ACNE
     Dosage: 40 MILLIGRAM DAILY;
     Route: 048
     Dates: start: 20120915, end: 20130215

REACTIONS (3)
  - Pregnancy on oral contraceptive [Recovered/Resolved]
  - Abortion induced [Unknown]
  - Exposure during pregnancy [None]
